FAERS Safety Report 10437732 (Version 1)
Quarter: 2014Q3

REPORT INFORMATION
  Report Type: Spontaneous
  Country: IT (occurrence: IT)
  Receive Date: 20140908
  Receipt Date: 20140908
  Transmission Date: 20150326
  Serious: Yes (Life-Threatening)
  Sender: FDA-Public Use
  Company Number: IT-JNJFOC-20140903768

PATIENT
  Age: 81 Year
  Sex: Male

DRUGS (5)
  1. LOSAPREX [Concomitant]
     Active Substance: LOSARTAN POTASSIUM
     Route: 065
  2. GLUCOPHAGE [Concomitant]
     Active Substance: METFORMIN HYDROCHLORIDE
     Route: 065
  3. NOVONORM [Concomitant]
     Active Substance: REPAGLINIDE
     Route: 065
  4. XARELTO [Suspect]
     Active Substance: RIVAROXABAN
     Indication: PRODUCT USED FOR UNKNOWN INDICATION
     Route: 048
  5. XATRAL [Concomitant]
     Active Substance: ALFUZOSIN
     Route: 065

REACTIONS (2)
  - Anaemia [Recovering/Resolving]
  - Oedema peripheral [Recovering/Resolving]

NARRATIVE: CASE EVENT DATE: 20140730
